FAERS Safety Report 4765985-2 (Version None)
Quarter: 2005Q3

REPORT INFORMATION
  Report Type: 
  Country: None (occurrence: None)
  Receive Date: 20050912
  Receipt Date: 20050825
  Transmission Date: 20060218
  Serious: Yes (Hospitalization)
  Sender: FDA-Public Use
  Company Number: 2005SE04849

PATIENT
  Age: 26099 Day
  Sex: Female

DRUGS (6)
  1. FASLODEX [Suspect]
     Indication: BREAST CANCER
     Route: 030
     Dates: start: 20050316, end: 20050516
  2. LOSEC MUPS [Concomitant]
     Indication: PROPHYLAXIS
     Route: 048
  3. IMPUGAN [Concomitant]
     Indication: OEDEMA
     Route: 048
  4. DURAGESIC-100 [Concomitant]
     Indication: PAIN
     Route: 048
  5. MIDAMOR [Concomitant]
     Indication: OEDEMA
     Route: 048
  6. BETAPRED [Concomitant]
     Indication: NEOPLASM MALIGNANT
     Route: 048

REACTIONS (1)
  - VENA CAVA THROMBOSIS [None]
